FAERS Safety Report 17855450 (Version 1)
Quarter: 2020Q2

REPORT INFORMATION
  Report Type: Spontaneous
  Country: US (occurrence: US)
  Receive Date: 20200602
  Receipt Date: 20200602
  Transmission Date: 20200714
  Serious: Yes (Death)
  Sender: FDA-Public Use
  Company Number: None

PATIENT
  Sex: Female

DRUGS (7)
  1. TEMOZOLOMIDE 100MG [Suspect]
     Active Substance: TEMOZOLOMIDE
     Indication: ANAEMIA
     Dosage: ?          OTHER FREQUENCY:QDX5DAYS;?
     Route: 048
     Dates: start: 20200305
  2. CAPECITABINE 150MG/500MG [Suspect]
     Active Substance: CAPECITABINE
     Indication: IRON DEFICIENCY
     Route: 048
     Dates: start: 20200304
  3. FUROSEMIDE. [Concomitant]
     Active Substance: FUROSEMIDE
  4. PANTOPRAZOLE POT CHLORIDE [Concomitant]
  5. DRONABINOL. [Concomitant]
     Active Substance: DRONABINOL
  6. PROPANOLOL [Concomitant]
     Active Substance: PROPRANOLOL HYDROCHLORIDE
  7. MEGESTROL [Concomitant]
     Active Substance: MEGESTROL

REACTIONS (1)
  - Death [None]
